FAERS Safety Report 8452520-0 (Version None)
Quarter: 2012Q2

REPORT INFORMATION
  Report Type: 
  Country: None (occurrence: None)
  Receive Date: 20120620
  Receipt Date: 20120617
  Transmission Date: 20120825
  Serious: Yes (Life-Threatening, Hospitalization)
  Sender: FDA-Public Use
  Company Number: PHHY2012DE052369

PATIENT
  Age: 41 Year
  Sex: Female
  Weight: 130 kg

DRUGS (9)
  1. REPAGLINIDE [Concomitant]
  2. MOXONIDINE [Concomitant]
     Dosage: 0.2 MG, UNK
  3. RASILEZ [Suspect]
     Dosage: 300 MG, UNK
     Route: 048
     Dates: start: 20111222
  4. PAROXETINE HCL [Concomitant]
     Dosage: 20 MG, UNK
  5. FLUTICASONE PROPIONATE/SALMETEROL [Concomitant]
  6. ATACAND [Concomitant]
     Dosage: 32 MG, UNK
     Route: 048
  7. VALPROATE SODIUM [Concomitant]
     Dosage: 300 MG, UNK
  8. MOXOBETA [Concomitant]
  9. VERAPAMIL [Concomitant]
     Dosage: 120 MG, UNK

REACTIONS (2)
  - APHASIA [None]
  - ISCHAEMIC STROKE [None]
